FAERS Safety Report 8556500 (Version 2)
Quarter: 2012Q4

REPORT INFORMATION
  Report Type: 
  Country: US (occurrence: US)
  Receive Date: 20120510
  Receipt Date: 20120914
  Transmission Date: 20130627
  Serious: Yes (Hospitalization)
  Sender: FDA-Public Use
  Company Number: US-PFIZER INC-2012113726

PATIENT
  Age: 54 Year
  Sex: Female

DRUGS (18)
  1. CHANTIX [Suspect]
     Indication: SMOKING CESSATION THERAPY
     Dosage: 0.5 mg, daily
     Route: 048
     Dates: start: 20120302, end: 201203
  2. CHANTIX [Suspect]
     Dosage: UNK
     Route: 048
     Dates: start: 201203, end: 201204
  3. LIDODERM [Concomitant]
     Dosage: UNK, 3x/day
  4. TOPAMAX [Concomitant]
     Dosage: 100 mg, 2x/day
  5. NEURONTIN [Concomitant]
     Dosage: 600 mg, 5x/day
  6. AMANTADINE [Concomitant]
     Dosage: 4 mg, daily
  7. POTASSIUM [Concomitant]
     Dosage: 50 mEq, daily
  8. ZOCOR [Concomitant]
     Dosage: 40 mg, daily
  9. LASIX [Concomitant]
     Dosage: 60 mg, daily
  10. PLENDIL [Concomitant]
     Dosage: 10 mg, daily
  11. METFORMIN [Concomitant]
     Indication: DIABETES MELLITUS
     Dosage: 500 mg, 4x/day
  12. GLIPIZIDE [Concomitant]
     Indication: DIABETES MELLITUS
     Dosage: 5 mg, daily
  13. CYMBALTA [Concomitant]
     Indication: NEUROPATHY PERIPHERAL
     Dosage: 60 mg, daily
  14. TRAZODONE [Concomitant]
     Indication: SLEEP DISORDER
     Dosage: 50 mg, daily
  15. TIMOLOL [Concomitant]
     Indication: GLAUCOMA
     Dosage: UNK
  16. OXYCODONE [Concomitant]
     Dosage: 5/325mg 5x/day
  17. BENADRYL [Concomitant]
     Dosage: UNK, daily
  18. SINGULAIR [Concomitant]
     Dosage: 10 mg, UNK

REACTIONS (2)
  - Gallbladder disorder [Unknown]
  - Abnormal dreams [Recovered/Resolved]
